FAERS Safety Report 7142570-9 (Version None)
Quarter: 2010Q4

REPORT INFORMATION
  Report Type: 
  Country: None (occurrence: None)
  Receive Date: 20101207
  Receipt Date: 20101202
  Transmission Date: 20110411
  Serious: Yes (Hospitalization)
  Sender: FDA-Public Use
  Company Number: JP-EISAI INC.-E2020-07780-SPO-JP

PATIENT
  Age: 85 Year
  Sex: Male

DRUGS (3)
  1. ARICEPT [Suspect]
     Route: 048
     Dates: end: 20100101
  2. ARICEPT [Suspect]
     Route: 048
     Dates: start: 20101001, end: 20100101
  3. GRAMALIL [Concomitant]
     Dates: start: 20101007, end: 20100101

REACTIONS (1)
  - APNOEA [None]
